FAERS Safety Report 17771366 (Version 1)
Quarter: 2020Q2

REPORT INFORMATION
  Report Type: Spontaneous
  Country: DE (occurrence: DE)
  Receive Date: 20200512
  Receipt Date: 20200512
  Transmission Date: 20200714
  Serious: Yes (Hospitalization)
  Sender: FDA-Public Use
  Company Number: DE-MYLANLABS-2020M1045720

PATIENT
  Age: 71 Year
  Sex: Female

DRUGS (9)
  1. URSOFALK [Concomitant]
     Active Substance: URSODIOL
     Dosage: 250 MG, 2-2-2-2, 6 HOURS
  2. PREDNISOLON                        /00016201/ [Concomitant]
     Active Substance: PREDNISOLONE
     Dosage: 5 MG, QD, 1-0-0-0
  3. PANTOPRAZOL                        /01263201/ [Concomitant]
     Active Substance: PANTOPRAZOLE
     Dosage: 40 MILLIGRAM, QD,0-0-1-0
  4. CARBOPLATIN. [Suspect]
     Active Substance: CARBOPLATIN
     Indication: PRODUCT USED FOR UNKNOWN INDICATION
     Dosage: UNK,NK MG, NACH SCHEMA
  5. TRIMBOW [Concomitant]
     Active Substance: BECLOMETHASONE DIPROPIONATE\FORMOTEROL FUMARATE\GLYCOPYRROLATE
     Dosage: 1 DOSAGE FORM, BID,87|5|9 ?G, 1-0-1-0
  6. LEVOTHYROXINUM NATRICUM [Concomitant]
     Dosage: 150 ?G, 1-0-0-0
  7. PEMETREXED. [Suspect]
     Active Substance: PEMETREXED
     Indication: PRODUCT USED FOR UNKNOWN INDICATION
     Dosage: UNK,NK MG, NACH SCHEMA
  8. IPRAMOL [Concomitant]
     Active Substance: ALBUTEROL SULFATE\IPRATROPIUM BROMIDE
     Dosage: UNK,NK MG, 4X
  9. CALCIUM [Concomitant]
     Active Substance: CALCIUM
     Dosage: 500 MILLIGRAM, QD,0-1-0-0

REACTIONS (2)
  - General physical health deterioration [Unknown]
  - Dyspnoea [Unknown]
